FAERS Safety Report 16352399 (Version 3)
Quarter: 2019Q3

REPORT INFORMATION
  Report Type: Spontaneous
  Country: AR (occurrence: AR)
  Receive Date: 20190524
  Receipt Date: 20190808
  Transmission Date: 20191004
  Serious: Yes (Hospitalization, Other)
  Sender: FDA-Public Use
  Company Number: AR-ACTELION-A-CH2019-190869

PATIENT
  Age: 41 Year
  Sex: Female
  Weight: 45 kg

DRUGS (2)
  1. LEVOTHYROXINE. [Concomitant]
     Active Substance: LEVOTHYROXINE
  2. VELETRI [Suspect]
     Active Substance: EPOPROSTENOL
     Indication: PULMONARY ARTERIAL HYPERTENSION
     Dosage: 1 NG/KG, PER MIN
     Route: 042
     Dates: start: 201704

REACTIONS (5)
  - Investigation abnormal [Recovering/Resolving]
  - Catheterisation cardiac [Recovering/Resolving]
  - Pain in jaw [Recovering/Resolving]
  - Fatigue [Recovering/Resolving]
  - Critical illness [Recovering/Resolving]

NARRATIVE: CASE EVENT DATE: 201902
